FAERS Safety Report 22046237 (Version 1)
Quarter: 2023Q1

REPORT INFORMATION
  Report Type: Spontaneous
  Country: TR (occurrence: TR)
  Receive Date: 20230228
  Receipt Date: 20230228
  Transmission Date: 20230418
  Serious: Yes (Life-Threatening, Hospitalization)
  Sender: FDA-Public Use
  Company Number: TR-BIOGEN-2022BI01130582

PATIENT
  Age: 35 Year
  Sex: Female
  Weight: 50 kg

DRUGS (1)
  1. TYSABRI [Suspect]
     Active Substance: NATALIZUMAB
     Indication: Multiple sclerosis
     Dosage: RECEIVED EVERY 4 WEEKS AND AT AN EXTENDED INTERVAL DOSING
     Route: 050
     Dates: start: 20180101, end: 202206

REACTIONS (5)
  - Cognitive disorder [Unknown]
  - Dysarthria [Unknown]
  - Balance disorder [Unknown]
  - Central nervous system lesion [Unknown]
  - Prescribed underdose [Unknown]

NARRATIVE: CASE EVENT DATE: 20220501
